FAERS Safety Report 7952810-1 (Version None)
Quarter: 2011Q4

REPORT INFORMATION
  Report Type: 
  Country: None (occurrence: None)
  Receive Date: 20111201
  Receipt Date: 20111121
  Transmission Date: 20120403
  Serious: Yes (Hospitalization)
  Sender: FDA-Public Use
  Company Number: US-ELI_LILLY_AND_COMPANY-US201104003297

PATIENT
  Sex: Female

DRUGS (4)
  1. FORTEO [Suspect]
     Indication: OSTEOPOROSIS
     Dosage: 20 UG, QD
     Dates: start: 20110401
  2. FORTEO [Suspect]
     Dosage: 20 UG, QD
     Dates: start: 20110624, end: 20110705
  3. EVISTA [Suspect]
     Indication: OSTEOPENIA
     Dosage: 60 MG, QD
  4. FORTEO [Suspect]
     Dosage: 20 UG, QD
     Dates: end: 20110611

REACTIONS (29)
  - BONE LOSS [None]
  - TOOTH DISORDER [None]
  - SWELLING FACE [None]
  - RHINITIS [None]
  - PIGMENTATION DISORDER [None]
  - SINUSITIS [None]
  - DISCOMFORT [None]
  - UTERINE LEIOMYOMA [None]
  - INJECTION SITE HAEMORRHAGE [None]
  - PALPITATIONS [None]
  - RASH [None]
  - JAW DISORDER [None]
  - HYPERSENSITIVITY [None]
  - PALLOR [None]
  - FEAR [None]
  - NASAL CONGESTION [None]
  - CHEST DISCOMFORT [None]
  - BLOOD GLUCOSE DECREASED [None]
  - POLYDIPSIA [None]
  - EXERCISE TOLERANCE DECREASED [None]
  - ENDOMETRIOSIS [None]
  - HYPOAESTHESIA [None]
  - DIZZINESS [None]
  - INTENTIONAL DRUG MISUSE [None]
  - BENIGN OVARIAN TUMOUR [None]
  - CHILLS [None]
  - HYPERHIDROSIS [None]
  - PAIN [None]
  - DYSPNOEA [None]
